FAERS Safety Report 7985629-6 (Version None)
Quarter: 2011Q4

REPORT INFORMATION
  Report Type: 
  Country: None (occurrence: None)
  Receive Date: 20111216
  Receipt Date: 20111213
  Transmission Date: 20120403
  Serious: Yes (Hospitalization)
  Sender: FDA-Public Use
  Company Number: US-ALEXION PHARMACEUTICALS INC.-A201101870

PATIENT
  Sex: Male

DRUGS (1)
  1. SOLIRIS [Suspect]
     Indication: PAROXYSMAL NOCTURNAL HAEMOGLOBINURIA
     Dosage: UNK
     Route: 042

REACTIONS (8)
  - HAEMOGLOBIN DECREASED [None]
  - DYSPNOEA [None]
  - DIARRHOEA [None]
  - VIRAL INFECTION [None]
  - PLATELET COUNT DECREASED [None]
  - NAUSEA [None]
  - ASTHENIA [None]
  - VOMITING [None]
